FAERS Safety Report 12701927 (Version 1)
Quarter: 2016Q3

REPORT INFORMATION
  Report Type: Spontaneous
  Country: US (occurrence: US)
  Receive Date: 20160831
  Receipt Date: 20160831
  Transmission Date: 20161109
  Serious: No
  Sender: FDA-Public Use
  Company Number: US-JAZZ-2016-US-007661

PATIENT
  Sex: Male

DRUGS (43)
  1. DEPO-TESTOSTERONE [Concomitant]
     Active Substance: TESTOSTERONE CYPIONATE
  2. GUAIFENESIN. [Concomitant]
     Active Substance: GUAIFENESIN
  3. MELOXICAM. [Concomitant]
     Active Substance: MELOXICAM
  4. MORPHINE [Concomitant]
     Active Substance: MORPHINE
  5. ASTELIN [Concomitant]
     Active Substance: AZELASTINE HYDROCHLORIDE
  6. XYREM [Suspect]
     Active Substance: SODIUM OXYBATE
     Indication: NARCOLEPSY
     Dosage: 2.25 G, BID
     Route: 048
     Dates: start: 200902, end: 200903
  7. PROVIGIL [Concomitant]
     Active Substance: MODAFINIL
  8. FROVA [Concomitant]
     Active Substance: FROVATRIPTAN SUCCINATE
  9. GABAPENTIN. [Concomitant]
     Active Substance: GABAPENTIN
  10. DILANTIN [Concomitant]
     Active Substance: PHENYTOIN
  11. ACETAZOLAMIDE. [Concomitant]
     Active Substance: ACETAZOLAMIDE
  12. MECLIZINE HCL [Concomitant]
     Active Substance: MECLIZINE HYDROCHLORIDE
  13. NORTRIPTYLINE HCL [Concomitant]
     Active Substance: NORTRIPTYLINE HYDROCHLORIDE
  14. XYREM [Suspect]
     Active Substance: SODIUM OXYBATE
     Dosage: 4.5 G, BID
     Route: 048
     Dates: start: 201409
  15. DULERA [Concomitant]
     Active Substance: FORMOTEROL FUMARATE DIHYDRATE\MOMETASONE FUROATE
  16. VOLTAREN [Concomitant]
     Active Substance: DICLOFENAC SODIUM
  17. CYMBALTA [Concomitant]
     Active Substance: DULOXETINE HYDROCHLORIDE
  18. XYREM [Suspect]
     Active Substance: SODIUM OXYBATE
     Dosage: 3 G, BID
     Route: 048
     Dates: start: 200903, end: 2009
  19. PREVACID [Concomitant]
     Active Substance: LANSOPRAZOLE
  20. METFORMIN HCL [Concomitant]
     Active Substance: METFORMIN HYDROCHLORIDE
  21. BACLOFEN. [Concomitant]
     Active Substance: BACLOFEN
  22. CAMPRAL [Concomitant]
     Active Substance: ACAMPROSATE CALCIUM
  23. NITROQUICK [Concomitant]
     Active Substance: NITROGLYCERIN
  24. ATIVAN [Concomitant]
     Active Substance: LORAZEPAM
  25. ZYRTEC [Concomitant]
     Active Substance: CETIRIZINE HYDROCHLORIDE
  26. XYREM [Suspect]
     Active Substance: SODIUM OXYBATE
     Dosage: 4.5 G, BID
     Route: 048
     Dates: start: 200911, end: 2012
  27. NARATRIPTAN HCL [Concomitant]
     Active Substance: NARATRIPTAN HYDROCHLORIDE
  28. TRILAFON [Concomitant]
     Active Substance: PERPHENAZINE
  29. AZELASTINE [Concomitant]
     Active Substance: AZELASTINE
  30. LORAZEPAM. [Concomitant]
     Active Substance: LORAZEPAM
  31. LYRICA [Concomitant]
     Active Substance: PREGABALIN
  32. RHINOCORT [Concomitant]
     Active Substance: BUDESONIDE
  33. TIZANIDINE. [Concomitant]
     Active Substance: TIZANIDINE
  34. VIDEX [Concomitant]
     Active Substance: DIDANOSINE
  35. LEVOTHYROXINE SODIUM. [Concomitant]
     Active Substance: LEVOTHYROXINE SODIUM
  36. ATORVASTATIN [Concomitant]
     Active Substance: ATORVASTATIN
  37. SERTRALINE [Concomitant]
     Active Substance: SERTRALINE HYDROCHLORIDE
  38. BUDESONIDE. [Concomitant]
     Active Substance: BUDESONIDE
  39. SYMAX [Concomitant]
     Active Substance: HYOSCYAMINE SULFATE
  40. TRAZODONE HYDROCHLORIDE. [Concomitant]
     Active Substance: TRAZODONE HYDROCHLORIDE
  41. SINGULAIR [Concomitant]
     Active Substance: MONTELUKAST SODIUM
  42. TRAMADOL. [Concomitant]
     Active Substance: TRAMADOL
  43. ZOFRAN [Concomitant]
     Active Substance: ONDANSETRON HYDROCHLORIDE

REACTIONS (1)
  - Sleep disorder [Not Recovered/Not Resolved]
